FAERS Safety Report 21897242 (Version 1)
Quarter: 2023Q1

REPORT INFORMATION
  Report Type: Spontaneous
  Country: US (occurrence: None)
  Receive Date: 20230120
  Receipt Date: 20230120
  Transmission Date: 20230417
  Serious: No
  Sender: FDA-Public Use
  Company Number: None

PATIENT
  Age: 81 Year
  Sex: Male
  Weight: 90.49 kg

DRUGS (7)
  1. CYCLOPHOSPHAMIDE [Suspect]
     Active Substance: CYCLOPHOSPHAMIDE
     Indication: Plasma cell myeloma
     Dosage: FREQUENCY : DAILY;?
     Route: 048
  2. ADVIL PM [Concomitant]
  3. ASPIR-LOW [Concomitant]
  4. FINASTERIDE MULTI VITAMIN DAILY [Concomitant]
  5. SYNTHROID [Concomitant]
  6. TRAZODONE HCI [Concomitant]
  7. ZYRTEC ALLERGY [Concomitant]

REACTIONS (1)
  - Therapy interrupted [None]
